FAERS Safety Report 17349542 (Version 4)
Quarter: 2020Q3

REPORT INFORMATION
  Report Type: Spontaneous
  Country: US (occurrence: US)
  Receive Date: 20200130
  Receipt Date: 20200915
  Transmission Date: 20201102
  Serious: No
  Sender: FDA-Public Use
  Company Number: US-SA-2020SA019145

PATIENT

DRUGS (2)
  1. DUPIXENT [Suspect]
     Active Substance: DUPILUMAB
     Indication: PRODUCT USED FOR UNKNOWN INDICATION
     Dosage: 600 MG, 1X
     Route: 058
     Dates: start: 201912, end: 201912
  2. DUPIXENT [Suspect]
     Active Substance: DUPILUMAB
     Dosage: 300 MG, QOW
     Route: 058
     Dates: start: 201912

REACTIONS (10)
  - Eye inflammation [Unknown]
  - Blepharitis [Unknown]
  - Swelling [Unknown]
  - Erythema [Unknown]
  - Hypersensitivity [Unknown]
  - Dry skin [Unknown]
  - Skin exfoliation [Unknown]
  - Rash [Recovered/Resolved]
  - Skin laceration [Unknown]
  - Pruritus [Unknown]
